FAERS Safety Report 8932879 (Version 1)
Quarter: 2012Q4

REPORT INFORMATION
  Report Type: 
  Country: US (occurrence: US)
  Receive Date: 20121129
  Receipt Date: 20121129
  Transmission Date: 20130627
  Serious: Yes (Disabling, Other)
  Sender: FDA-Public Use
  Company Number: US-BAYER-2012-110533

PATIENT
  Age: 34 Year
  Sex: Female

DRUGS (4)
  1. MIRENA [Suspect]
     Indication: CONTRACEPTION
     Dosage: 20 mcg/24hr, CONT
     Route: 015
     Dates: start: 201206, end: 20120928
  2. MIRENA [Suspect]
     Indication: GENITAL BLEEDING
  3. MIRENA [Suspect]
     Indication: ABDOMINAL CRAMPS
  4. IBUPROFEN [Concomitant]

REACTIONS (10)
  - Post procedural haemorrhage [None]
  - Menorrhagia [Recovered/Resolved]
  - Polymenorrhoea [None]
  - Abdominal pain [Recovered/Resolved]
  - Abdominal pain [None]
  - Headache [Recovered/Resolved]
  - Weight increased [Recovering/Resolving]
  - Breast pain [None]
  - Back pain [None]
  - Breast tenderness [None]
